FAERS Safety Report 12807933 (Version 4)
Quarter: 2016Q4

REPORT INFORMATION
  Report Type: Report from Study
  Country: US (occurrence: US)
  Receive Date: 20161004
  Receipt Date: 20161110
  Transmission Date: 20170207
  Serious: Yes (Hospitalization, Other)
  Sender: FDA-Public Use
  Company Number: US-GILEAD-2016-0236170

PATIENT
  Age: 70 Year
  Sex: Female
  Weight: 67 kg

DRUGS (25)
  1. FERROUS SULFATE. [Concomitant]
     Active Substance: FERROUS SULFATE
  2. GLIPIZIDE. [Concomitant]
     Active Substance: GLIPIZIDE
  3. SILDENAFIL CITRATE. [Concomitant]
     Active Substance: SILDENAFIL CITRATE
  4. FUROSEMIDE. [Concomitant]
     Active Substance: FUROSEMIDE
  5. AMBRISENTAN [Suspect]
     Active Substance: AMBRISENTAN
     Indication: PULMONARY HYPERTENSION
     Dosage: 5 MG, QD
     Route: 048
     Dates: start: 20160908
  6. LEVEMIR [Concomitant]
     Active Substance: INSULIN DETEMIR
  7. FLUTICASONE PROPIONATE. [Concomitant]
     Active Substance: FLUTICASONE PROPIONATE
  8. AMLODIPINE BESILATE [Concomitant]
     Active Substance: AMLODIPINE BESYLATE
  9. FOLIC ACID. [Concomitant]
     Active Substance: FOLIC ACID
  10. SENOKOT [Concomitant]
     Active Substance: SENNOSIDES
  11. ACETAMINOPHEN. [Concomitant]
     Active Substance: ACETAMINOPHEN
  12. ADCIRCA [Concomitant]
     Active Substance: TADALAFIL
  13. LOSARTAN POTASSIUM. [Concomitant]
     Active Substance: LOSARTAN POTASSIUM
  14. PROAIR HFA [Concomitant]
     Active Substance: ALBUTEROL SULFATE
  15. CLOPIDOGREL [Concomitant]
     Active Substance: CLOPIDOGREL BISULFATE
  16. AMBRISENTAN [Suspect]
     Active Substance: AMBRISENTAN
     Indication: LANGERHANS^ CELL HISTIOCYTOSIS
  17. ALLOPURINOL. [Concomitant]
     Active Substance: ALLOPURINOL
  18. LIPITOR [Concomitant]
     Active Substance: ATORVASTATIN CALCIUM
  19. PANTOPRAZOLE [Concomitant]
     Active Substance: PANTOPRAZOLE SODIUM
  20. PROTONIX                           /00661201/ [Concomitant]
     Active Substance: OMEPRAZOLE
  21. JANUVIA [Concomitant]
     Active Substance: SITAGLIPTIN PHOSPHATE
  22. COREG [Concomitant]
     Active Substance: CARVEDILOL
  23. DOCUSATE [Concomitant]
     Active Substance: DOCUSATE
  24. BETADINE [Concomitant]
     Active Substance: POVIDONE-IODINE
  25. ALBUTEROL                          /00139501/ [Concomitant]
     Active Substance: ALBUTEROL

REACTIONS (7)
  - Pulmonary arterial hypertension [Not Recovered/Not Resolved]
  - Respiratory failure [Unknown]
  - Ascites [Unknown]
  - Weight increased [Unknown]
  - Cardiac failure [Unknown]
  - Dialysis [Not Recovered/Not Resolved]
  - Fluid retention [Recovered/Resolved]

NARRATIVE: CASE EVENT DATE: 20160916
